FAERS Safety Report 7931723-5 (Version None)
Quarter: 2011Q4

REPORT INFORMATION
  Report Type: 
  Country: None (occurrence: None)
  Receive Date: 20111121
  Receipt Date: 20111115
  Transmission Date: 20120403
  Serious: Yes (Death, Other)
  Sender: FDA-Public Use
  Company Number: PHHY2011PT101212

PATIENT
  Age: 56 Year
  Sex: Male

DRUGS (3)
  1. CYCLOSPORINE [Suspect]
     Indication: STEM CELL TRANSPLANT
     Dosage: UNK UKN, UNK
  2. MELPHALAN HYDROCHLORIDE [Concomitant]
     Dosage: UNK UKN, UNK
  3. MYCOPHENOLATE MOFETIL [Concomitant]
     Dosage: UNK UKN, UNK

REACTIONS (7)
  - BLADDER DISORDER [None]
  - HAEMATURIA [None]
  - CONCOMITANT DISEASE PROGRESSION [None]
  - CYSTITIS HAEMORRHAGIC [None]
  - GRAFT VERSUS HOST DISEASE IN SKIN [None]
  - CLAUSTROPHOBIA [None]
  - BK VIRUS INFECTION [None]
